FAERS Safety Report 4417692-3 (Version None)
Quarter: 2004Q2

REPORT INFORMATION
  Report Type: 
  Country: None (occurrence: None)
  Receive Date: 20040629
  Receipt Date: 20031201
  Transmission Date: 20050107
  Serious: Yes (Hospitalization, Other)
  Sender: FDA-Public Use
  Company Number: USA031253625

PATIENT
  Age: 71 Year
  Sex: Female

DRUGS (3)
  1. HUMALOG [Suspect]
     Indication: DIABETES MELLITUS
     Dosage: 47 U/DAY
     Dates: start: 20010701
  2. HUMULIN R [Suspect]
     Indication: DIABETES MELLITUS
  3. HUMULIN 70/30 [Suspect]
     Indication: DIABETES MELLITUS
     Dates: start: 19970101, end: 20010701

REACTIONS (8)
  - BALANCE DISORDER [None]
  - BLOOD GLUCOSE INCREASED [None]
  - CATARACT [None]
  - CEREBROVASCULAR ACCIDENT [None]
  - DIZZINESS [None]
  - HYPOACUSIS [None]
  - RETINOPATHY [None]
  - VOMITING [None]
